FAERS Safety Report 19403132 (Version 7)
Quarter: 2023Q2

REPORT INFORMATION
  Report Type: Report from Study
  Country: MX (occurrence: MX)
  Receive Date: 20210610
  Receipt Date: 20230628
  Transmission Date: 20230722
  Serious: Yes (Hospitalization, Disabling, Other)
  Sender: FDA-Public Use
  Company Number: MX-NOVARTISPH-NVSC2021MX127013

PATIENT
  Sex: Female
  Weight: 78 kg

DRUGS (2)
  1. TASIGNA [Suspect]
     Active Substance: NILOTINIB
     Indication: Chronic myeloid leukaemia
     Dosage: 800 MG, QD
     Route: 048
  2. TASIGNA [Suspect]
     Active Substance: NILOTINIB
     Dosage: UNK
     Route: 048

REACTIONS (26)
  - Arterial disorder [Unknown]
  - Thrombosis [Unknown]
  - Limb injury [Unknown]
  - Nail discolouration [Unknown]
  - Oxygen saturation decreased [Unknown]
  - Wound complication [Unknown]
  - Blood electrolytes increased [Unknown]
  - Puncture site inflammation [Recovering/Resolving]
  - Blood potassium increased [Unknown]
  - Pain in extremity [Not Recovered/Not Resolved]
  - Diabetic neuropathy [Unknown]
  - Mobility decreased [Not Recovered/Not Resolved]
  - Gangrene [Unknown]
  - Type 2 diabetes mellitus [Unknown]
  - Malaise [Unknown]
  - Depressed mood [Unknown]
  - Discouragement [Unknown]
  - Fear [Unknown]
  - Anxiety [Unknown]
  - Illness [Unknown]
  - Renal disorder [Unknown]
  - Glycosylated haemoglobin increased [Unknown]
  - Blood cholesterol increased [Unknown]
  - Blood triglycerides increased [Unknown]
  - Blood glucose abnormal [Unknown]
  - Inappropriate schedule of product administration [Unknown]
